FAERS Safety Report 6635072-7 (Version None)
Quarter: 2010Q1

REPORT INFORMATION
  Report Type: 
  Country: None (occurrence: None)
  Receive Date: 20100315
  Receipt Date: 20100301
  Transmission Date: 20100710
  Serious: Yes (Other)
  Sender: FDA-Public Use
  Company Number: PHEH2007US05952

PATIENT
  Sex: Male

DRUGS (1)
  1. ZELNORM [Suspect]
     Indication: CONSTIPATION
     Dosage: TABLET 2 TO 3 TIMES PER DAY
     Route: 048
     Dates: start: 20051101, end: 20070412

REACTIONS (7)
  - ANXIETY [None]
  - CARDIAC DISORDER [None]
  - CHEST DISCOMFORT [None]
  - CHEST PAIN [None]
  - HEART RATE ABNORMAL [None]
  - PAIN [None]
  - PALPITATIONS [None]
